FAERS Safety Report 10507514 (Version 1)
Quarter: 2014Q4

REPORT INFORMATION
  Report Type: Spontaneous
  Country: US (occurrence: None)
  Receive Date: 20141008
  Receipt Date: 20141008
  Transmission Date: 20150528
  Serious: Yes (Hospitalization)
  Sender: FDA-Public Use
  Company Number: None

PATIENT
  Age: 64 Year
  Sex: Male
  Weight: 59.8 kg

DRUGS (1)
  1. INTRON A [Suspect]
     Active Substance: INTERFERON ALFA-2B
     Dates: end: 20120919

REACTIONS (9)
  - Asthenia [None]
  - Confusional state [None]
  - Fall [None]
  - Dizziness [None]
  - Tachycardia [None]
  - Dehydration [None]
  - Decreased activity [None]
  - Activities of daily living impaired [None]
  - Weight decreased [None]

NARRATIVE: CASE EVENT DATE: 20120920
